FAERS Safety Report 9132031 (Version 1)
Quarter: 2013Q1

REPORT INFORMATION
  Report Type: Report from Study
  Country: DE (occurrence: DE)
  Receive Date: 20130208
  Receipt Date: 20130208
  Transmission Date: 20140127
  Serious: Yes (Life-Threatening, Hospitalization)
  Sender: FDA-Public Use
  Company Number: DE-ROCHE-1188389

PATIENT
  Age: 41 Year
  Sex: Female
  Weight: 97 kg

DRUGS (1)
  1. METHOXY POLYETHYLENE GLYCOL-EPOETIN BETA [Suspect]
     Indication: NEPHROGENIC ANAEMIA
     Dosage: LAST DOSE PRIOR TO SAE : 05/AUG/2011
     Route: 042
     Dates: start: 20110720

REACTIONS (1)
  - Shunt occlusion [Recovered/Resolved]
